FAERS Safety Report 17228459 (Version 1)
Quarter: 2020Q1

REPORT INFORMATION
  Report Type: Report from Study
  Country: NL (occurrence: NL)
  Receive Date: 20200103
  Receipt Date: 20200103
  Transmission Date: 20200409
  Serious: Yes (Other)
  Sender: FDA-Public Use
  Company Number: NL-TEVA-2019-NL-1161021

PATIENT
  Age: 82 Year
  Sex: Female

DRUGS (2)
  1. SARILUMAB [Suspect]
     Active Substance: SARILUMAB
     Indication: RHEUMATOID ARTHRITIS
     Dosage: 200 MG, QOW
     Dates: start: 20190416
  2. SIMVASTATIN. [Suspect]
     Active Substance: SIMVASTATIN
     Route: 065

REACTIONS (3)
  - Nightmare [Not Recovered/Not Resolved]
  - Leukopenia [Recovered/Resolved]
  - Neutropenia [Recovered/Resolved]

NARRATIVE: CASE EVENT DATE: 20190718
